FAERS Safety Report 4482156-8 (Version None)
Quarter: 2004Q4

REPORT INFORMATION
  Report Type: 
  Country: None (occurrence: None)
  Receive Date: 20041020
  Receipt Date: 20041007
  Transmission Date: 20050328
  Serious: Yes (Other)
  Sender: FDA-Public Use
  Company Number: 2004015531

PATIENT
  Age: 53 Year
  Sex: Female

DRUGS (6)
  1. LIPITOR [Suspect]
     Indication: HYPERCHOLESTEROLAEMIA
     Dosage: 10 MG (1 IN 1 D), ORAL
     Route: 048
     Dates: start: 20030725, end: 20040224
  2. TRANDOLAPRIL (TRANDOLAPRIL) [Concomitant]
  3. EFONIDIPINE (EFONIDIPINE) [Concomitant]
  4. PREDNISOLONE [Concomitant]
  5. PRAVASTATIN [Concomitant]
  6. FERROUS CITRATE [Concomitant]

REACTIONS (11)
  - ANTI-PLATELET ANTIBODY POSITIVE [None]
  - APPLICATION SITE BLEEDING [None]
  - BLOOD PRESSURE INCREASED [None]
  - FEELING ABNORMAL [None]
  - GINGIVAL BLEEDING [None]
  - HAEMATOCRIT DECREASED [None]
  - HAEMOGLOBIN DECREASED [None]
  - LYMPHOCYTE PERCENTAGE INCREASED [None]
  - NEUTROPHIL PERCENTAGE DECREASED [None]
  - RED BLOOD CELL COUNT DECREASED [None]
  - THROMBOCYTOPENIA [None]
